FAERS Safety Report 8691728 (Version 5)
Quarter: 2012Q4

REPORT INFORMATION
  Report Type: 
  Country: JP (occurrence: JP)
  Receive Date: 20120730
  Receipt Date: 20121226
  Transmission Date: 20130627
  Serious: Yes (Other)
  Sender: FDA-Public Use
  Company Number: JP-PFIZER INC-2012176165

PATIENT
  Age: 82 Year
  Sex: Female

DRUGS (7)
  1. ANCARON [Suspect]
     Indication: ATRIAL FIBRILLATION
     Dosage: 100 mg, daily
     Route: 048
     Dates: start: 20110416, end: 20120705
  2. NU LOTAN [Concomitant]
     Indication: HYPERTENSION
     Dosage: UNK
     Dates: start: 20110331, end: 20120809
  3. SELBEX [Concomitant]
     Indication: CHRONIC GASTRITIS
     Dosage: UNK
     Dates: start: 20110331
  4. GASMOTIN [Concomitant]
     Indication: CHRONIC GASTRITIS
     Dosage: UNK
     Dates: start: 20110331
  5. CRESTOR [Concomitant]
     Indication: HYPERCHOLESTEROLEMIA
     Dosage: UNK
     Dates: start: 20110617, end: 20121012
  6. SELARA [Concomitant]
     Indication: HYPONATREMIA
     Dosage: UNK
     Dates: start: 20111108
  7. NEXIUM [Concomitant]
     Dosage: UNK
     Dates: start: 20110131

REACTIONS (2)
  - Interstitial lung disease [Recovering/Resolving]
  - Cardiac disorder [Unknown]
